FAERS Safety Report 4607243-2 (Version None)
Quarter: 2005Q1

REPORT INFORMATION
  Report Type: 
  Country: None (occurrence: None)
  Receive Date: 20050309
  Receipt Date: 20050222
  Transmission Date: 20050727
  Serious: Yes (Hospitalization, Other)
  Sender: FDA-Public Use
  Company Number: JP_041105097

PATIENT
  Age: 27 Year
  Sex: Male

DRUGS (2)
  1. ONCOVIN [Suspect]
     Indication: PERIPHERAL T-CELL LYMPHOMA UNSPECIFIED
     Dosage: 2 MG
  2. PREDNISOLONE [Concomitant]

REACTIONS (15)
  - ALPHA TUMOUR NECROSIS FACTOR INCREASED [None]
  - BLOOD CREATININE INCREASED [None]
  - BLOOD UREA INCREASED [None]
  - CONDITION AGGRAVATED [None]
  - HAEMODIALYSIS [None]
  - HYPERKALAEMIA [None]
  - HYPERURICAEMIA [None]
  - INTERLEUKIN LEVEL INCREASED [None]
  - LABORATORY TEST ABNORMAL [None]
  - MALIGNANT NEOPLASM PROGRESSION [None]
  - PERIPHERAL T-CELL LYMPHOMA UNSPECIFIED [None]
  - RESPIRATORY FAILURE [None]
  - TUMOUR LYSIS SYNDROME [None]
  - URINE OUTPUT DECREASED [None]
  - WHITE BLOOD CELL COUNT DECREASED [None]
